FAERS Safety Report 8081924-3 (Version None)
Quarter: 2012Q1

REPORT INFORMATION
  Report Type: 
  Country: None (occurrence: None)
  Receive Date: 20120130
  Receipt Date: 20111031
  Transmission Date: 20120608
  Serious: No
  Sender: FDA-Public Use
  Company Number: US-ABBOTT-10P-163-0648984-00

PATIENT
  Sex: Male
  Weight: 92.162 kg

DRUGS (1)
  1. LUPRON DEPOT [Suspect]
     Indication: PROSTATE CANCER
     Dates: start: 20080101, end: 20110501

REACTIONS (8)
  - INCREASED APPETITE [None]
  - LOSS OF LIBIDO [None]
  - OBSESSIVE-COMPULSIVE DISORDER [None]
  - HOT FLUSH [None]
  - WEIGHT INCREASED [None]
  - BREAST TENDERNESS [None]
  - DEPRESSION [None]
  - DYSGEUSIA [None]
